FAERS Safety Report 20587241 (Version 1)
Quarter: 2022Q1

REPORT INFORMATION
  Report Type: Spontaneous
  Country: US (occurrence: US)
  Receive Date: 20220314
  Receipt Date: 20220314
  Transmission Date: 20220423
  Serious: Yes (Life-Threatening, Hospitalization, Other)
  Sender: FDA-Public Use
  Company Number: US-drreddys-SPO/USA/22/0147624

PATIENT
  Age: 14 Year
  Sex: Female

DRUGS (6)
  1. RISPERIDONE [Suspect]
     Active Substance: RISPERIDONE
     Indication: Hallucination
     Dosage: 4 DOSES TOTAL
  2. METHYLPREDNISOLONE [Suspect]
     Active Substance: METHYLPREDNISOLONE
     Indication: Seizure prophylaxis
     Dosage: HIGH-DOSE
  3. LEVETIRACETAM [Concomitant]
     Active Substance: LEVETIRACETAM
     Indication: Seizure prophylaxis
  4. MYCOPHENOLATE MOFETIL [Concomitant]
     Active Substance: MYCOPHENOLATE MOFETIL
     Indication: Systemic lupus erythematosus
  5. MYCOPHENOLATE MOFETIL [Concomitant]
     Active Substance: MYCOPHENOLATE MOFETIL
     Indication: Neuropsychiatric lupus
  6. CLONIDINE [Concomitant]
     Active Substance: CLONIDINE
     Indication: Insomnia
     Dosage: EVERY NIGHT AT BEDTIME

REACTIONS (1)
  - Malignant catatonia [Recovered/Resolved]
